FAERS Safety Report 16245370 (Version 1)
Quarter: 2019Q2

REPORT INFORMATION
  Report Type: Spontaneous
  Country: JP (occurrence: JP)
  Receive Date: 20190426
  Receipt Date: 20190426
  Transmission Date: 20190711
  Serious: Yes (Hospitalization, Other)
  Sender: FDA-Public Use
  Company Number: JP-ELI_LILLY_AND_COMPANY-JP201902004663

PATIENT
  Age: 65 Year
  Sex: Male

DRUGS (3)
  1. TAKECAB [Concomitant]
     Active Substance: VONOPRAZAN FUMURATE
  2. CYRAMZA [Suspect]
     Active Substance: RAMUCIRUMAB
     Dosage: UNK
     Route: 041
     Dates: start: 20190208
  3. CYRAMZA [Suspect]
     Active Substance: RAMUCIRUMAB
     Indication: GASTRIC CANCER
     Dosage: UNK, CYCLICAL
     Route: 041
     Dates: start: 20180404, end: 20181022

REACTIONS (2)
  - Malignant neoplasm progression [Unknown]
  - Tumour haemorrhage [Recovered/Resolved]

NARRATIVE: CASE EVENT DATE: 20181022
